FAERS Safety Report 9481759 (Version 1)
Quarter: 2013Q3

REPORT INFORMATION
  Report Type: Spontaneous
  Country: US (occurrence: US)
  Receive Date: 20130828
  Receipt Date: 20130828
  Transmission Date: 20140515
  Serious: No
  Sender: FDA-Public Use
  Company Number: US-B.I. PHARMACEUTICALS,INC./RIDGEFIELD-2013-BI-26117BP

PATIENT
  Age: 67 Year
  Sex: Female
  Weight: 67 kg

DRUGS (10)
  1. SPIRIVA [Suspect]
     Indication: CHRONIC OBSTRUCTIVE PULMONARY DISEASE
     Dosage: 18 MCG
     Route: 055
     Dates: start: 201306, end: 20130815
  2. VYTORIN [Concomitant]
     Indication: CARDIAC DISORDER
     Dosage: STRENGTH: 10-40; DAILY DOSE: 10-40
     Route: 048
     Dates: start: 2001
  3. POTASSIUM [Concomitant]
     Indication: SUPPLEMENTATION THERAPY
     Dosage: 10 MG
     Route: 048
     Dates: start: 2001
  4. ISOSORBIDE [Concomitant]
     Indication: HYPERTENSION
     Dosage: 120 MG
     Route: 048
     Dates: start: 2001
  5. XARELTO [Concomitant]
     Indication: CEREBROVASCULAR ACCIDENT PROPHYLAXIS
     Dosage: 20 MG
     Route: 048
     Dates: start: 201303
  6. NITROGLYCERINE [Concomitant]
     Indication: CHEST PAIN
     Dates: start: 2001
  7. ENALAPRIL [Concomitant]
     Indication: CARDIAC FAILURE CONGESTIVE
     Dosage: 5 MG
     Route: 048
     Dates: start: 2001
  8. ALPRAZOLAM [Concomitant]
     Indication: CARDIAC DISORDER
     Dosage: 0.5 MG
     Route: 048
     Dates: start: 2001
  9. LASIX [Concomitant]
     Indication: CARDIAC FAILURE CONGESTIVE
     Dosage: 40 MG
     Route: 048
     Dates: start: 2001
  10. CARVEDILOL [Concomitant]
     Indication: CARDIAC FAILURE CONGESTIVE
     Dosage: 12.5 MG
     Route: 048
     Dates: start: 2001

REACTIONS (1)
  - Haemoptysis [Recovered/Resolved]
